FAERS Safety Report 5455325-8 (Version None)
Quarter: 2007Q3

REPORT INFORMATION
  Report Type: 
  Country: None (occurrence: None)
  Receive Date: 20070913
  Receipt Date: 20070913
  Transmission Date: 20080115
  Serious: No
  Sender: FDA-Public Use
  Company Number: None

PATIENT
  Age: 62 Year
  Sex: Male

DRUGS (8)
  1. PIPERACILLIN AND TAZOBACTAM [Suspect]
     Indication: ABSCESS LIMB
     Dosage: 2.25GM TID IV
     Route: 042
     Dates: start: 20070628, end: 20070702
  2. PIPERACILLIN AND TAZOBACTAM [Suspect]
     Indication: CELLULITIS
     Dosage: 2.25GM TID IV
     Route: 042
     Dates: start: 20070628, end: 20070702
  3. PIPERACILLIN AND TAZOBACTAM [Suspect]
     Dosage: 0.75GM OTHER IV
     Route: 042
     Dates: start: 20070528, end: 20070702
  4. DARBOPOETIN [Concomitant]
  5. VNACOMYCIN [Concomitant]
  6. OMEPRAZOLE [Concomitant]
  7. NEPHROVITE [Concomitant]
  8. SINEMET [Concomitant]

REACTIONS (4)
  - PETECHIAE [None]
  - RASH GENERALISED [None]
  - RASH MACULAR [None]
  - RASH PRURITIC [None]
